FAERS Safety Report 5533843-1 (Version None)
Quarter: 2007Q4

REPORT INFORMATION
  Report Type: 
  Country: None (occurrence: None)
  Receive Date: 20071129
  Receipt Date: 20071118
  Transmission Date: 20080405
  Serious: Yes (Other)
  Sender: FDA-Public Use
  Company Number: CHPA2007CA12304

PATIENT
  Age: 45 Year
  Sex: Female

DRUGS (1)
  1. BUCKLEY'S COUGH, COLD + FLU NIGHTIME RELIEF EXTRA STRENGTH (NCH)(ACETA [Suspect]
     Dosage: 10 DF, ORAL
     Route: 048

REACTIONS (2)
  - LETHARGY [None]
  - OVERDOSE [None]
